FAERS Safety Report 24443305 (Version 1)
Quarter: 2024Q4

REPORT INFORMATION
  Report Type: Spontaneous
  Country: DE (occurrence: DE)
  Receive Date: 20241016
  Receipt Date: 20241016
  Transmission Date: 20250115
  Serious: Yes (Death, Other)
  Sender: ALKEM
  Company Number: DE-ALKEM LABORATORIES LIMITED-DE-ALKEM-2024-23359

PATIENT
  Age: 12 Year

DRUGS (8)
  1. ARIPIPRAZOLE [Suspect]
     Active Substance: ARIPIPRAZOLE
     Indication: Emotional disorder
     Dosage: UNK
     Route: 065
  2. ARIPIPRAZOLE [Suspect]
     Active Substance: ARIPIPRAZOLE
     Indication: Behaviour disorder
  3. ARIPIPRAZOLE [Suspect]
     Active Substance: ARIPIPRAZOLE
     Indication: Intellectual disability
  4. ARIPIPRAZOLE [Suspect]
     Active Substance: ARIPIPRAZOLE
     Indication: Epilepsy
  5. GUANFACINE [Suspect]
     Active Substance: GUANFACINE
     Indication: Emotional disorder
     Dosage: UNK
     Route: 065
  6. GUANFACINE [Suspect]
     Active Substance: GUANFACINE
     Indication: Behaviour disorder
  7. GUANFACINE [Suspect]
     Active Substance: GUANFACINE
     Indication: Intellectual disability
  8. GUANFACINE [Suspect]
     Active Substance: GUANFACINE
     Indication: Epilepsy

REACTIONS (1)
  - Electrocardiogram QT prolonged [Fatal]
